FAERS Safety Report 18053139 (Version 1)
Quarter: 2020Q3

REPORT INFORMATION
  Report Type: Spontaneous
  Country: US (occurrence: US)
  Receive Date: 20200721
  Receipt Date: 20200721
  Transmission Date: 20201103
  Serious: Yes (Hospitalization)
  Sender: FDA-Public Use
  Company Number: None

PATIENT
  Age: 86 Year
  Sex: Female
  Weight: 91.63 kg

DRUGS (15)
  1. NEFEDIPINE [Concomitant]
  2. CHLORTALIDONE [Concomitant]
     Active Substance: CHLORTHALIDONE
  3. LOW DOSE ASPIRIN [Concomitant]
     Active Substance: ASPIRIN
  4. ATENOLOL AND CHLORTHALIDONE [Suspect]
     Active Substance: ATENOLOL\CHLORTHALIDONE
     Indication: HYPERTENSION
     Dosage: ?          QUANTITY:1.5 ;?
     Route: 048
     Dates: start: 20200616, end: 20200622
  5. ATENOLOL. [Concomitant]
     Active Substance: ATENOLOL
  6. CALCITRIOL. [Concomitant]
     Active Substance: CALCITRIOL
  7. CINNAMON. [Concomitant]
     Active Substance: CINNAMON
  8. TURMERIC [Concomitant]
     Active Substance: HERBALS\TURMERIC
  9. CURC [Concomitant]
  10. GEMFIBROZIAL [Concomitant]
  11. LEVOTHYROXIN [Concomitant]
     Active Substance: LEVOTHYROXINE
  12. HUMULIN 70/30 KWIK PEN [Concomitant]
  13. ALLOPURINOL. [Concomitant]
     Active Substance: ALLOPURINOL
  14. MULTI VITAMIN [Concomitant]
     Active Substance: VITAMINS
  15. FISH OIL [Concomitant]
     Active Substance: FISH OIL

REACTIONS (1)
  - Blood pressure abnormal [None]

NARRATIVE: CASE EVENT DATE: 20200616
